FAERS Safety Report 17482749 (Version 1)
Quarter: 2020Q1

REPORT INFORMATION
  Report Type: Spontaneous
  Country: US (occurrence: US)
  Receive Date: 20200302
  Receipt Date: 20200302
  Transmission Date: 20200409
  Serious: Yes (Other)
  Sender: FDA-Public Use
  Company Number: US-BAYER-2020-033440

PATIENT

DRUGS (3)
  1. PHENTERMINE. [Concomitant]
     Active Substance: PHENTERMINE
  2. METHIMAZOLE. [Concomitant]
     Active Substance: METHIMAZOLE
  3. PARACETAMOL [Suspect]
     Active Substance: ACETAMINOPHEN

REACTIONS (4)
  - Drug-induced liver injury [None]
  - Hepatic encephalopathy [None]
  - Coagulopathy [None]
  - Acute hepatic failure [None]
